FAERS Safety Report 6791103-5 (Version None)
Quarter: 2010Q2

REPORT INFORMATION
  Report Type: 
  Country: None (occurrence: None)
  Receive Date: 20100624
  Receipt Date: 20100615
  Transmission Date: 20101027
  Serious: Yes (Other)
  Sender: FDA-Public Use
  Company Number: GXKR2010GB06608

PATIENT
  Age: 66 Year
  Sex: Female

DRUGS (5)
  1. LEVODOPA+CARBIDOPA (NGX) [Suspect]
     Indication: PARKINSON'S DISEASE
     Dosage: UNK
     Route: 065
     Dates: start: 20060101
  2. LEVODOPA+CARBIDOPA (NGX) [Suspect]
     Dosage: INCREASED TO 500 MG L-DOPA/DAY
     Route: 065
     Dates: start: 20060101
  3. LEVODOPA+CARBIDOPA (NGX) [Suspect]
     Dosage: 800 MG LEVODOPA/DAY
     Route: 065
  4. ROTIGOTINE [Suspect]
     Indication: PARKINSON'S DISEASE
     Dosage: UNK
     Route: 065
     Dates: start: 20070101
  5. ROTIGOTINE [Suspect]
     Dosage: 6 MG/DAY
     Route: 065

REACTIONS (1)
  - OBSESSIVE-COMPULSIVE DISORDER [None]
